FAERS Safety Report 15925275 (Version 2)
Quarter: 2019Q1

REPORT INFORMATION
  Report Type: Spontaneous
  Country: US (occurrence: US)
  Receive Date: 20190205
  Receipt Date: 20190219
  Transmission Date: 20190417
  Serious: No
  Sender: FDA-Public Use
  Company Number: US-ALLERGAN-1839833US

PATIENT
  Age: 75 Year
  Sex: Female

DRUGS (3)
  1. BOTOX [Suspect]
     Active Substance: ONABOTULINUMTOXINA
     Indication: MIGRAINE
     Dosage: UNK, SINGLE
     Route: 030
     Dates: start: 20180710, end: 20180710
  2. LEVOTHYROXINE. [Concomitant]
     Active Substance: LEVOTHYROXINE
     Indication: HYPOTHYROIDISM
     Dosage: 75 ?G, UNK
     Route: 048
  3. NATURE-THROID [Concomitant]
     Active Substance: THYROID, PORCINE
     Indication: HYPOTHYROIDISM
     Dosage: 30 MG, UNK
     Route: 048

REACTIONS (5)
  - Therapeutic response decreased [Unknown]
  - Dry mouth [Recovered/Resolved]
  - Neck pain [Recovering/Resolving]
  - Eyelid ptosis [Not Recovered/Not Resolved]
  - Swelling of eyelid [Not Recovered/Not Resolved]

NARRATIVE: CASE EVENT DATE: 20180713
